FAERS Safety Report 24446454 (Version 1)
Quarter: 2024Q4

REPORT INFORMATION
  Report Type: Report from Study
  Country: US (occurrence: US)
  Receive Date: 20241016
  Receipt Date: 20241016
  Transmission Date: 20250115
  Serious: Yes (Hospitalization)
  Sender: ROCHE
  Company Number: US-ROCHE-2963231

PATIENT
  Age: 63 Year
  Sex: Female
  Weight: 64.41 kg

DRUGS (8)
  1. OCREVUS [Suspect]
     Active Substance: OCRELIZUMAB
     Indication: Relapsing-remitting multiple sclerosis
     Route: 065
     Dates: start: 20210310
  2. OCREVUS [Suspect]
     Active Substance: OCRELIZUMAB
     Dosage: 600MG EVERY 6 MONTHS
     Route: 042
     Dates: start: 2022
  3. GABAPENTIN [Concomitant]
     Active Substance: GABAPENTIN
  4. BACLOFEN [Concomitant]
     Active Substance: BACLOFEN
  5. CLONAZEPAM [Concomitant]
     Active Substance: CLONAZEPAM
  6. OXCARBAZEPINE [Concomitant]
     Active Substance: OXCARBAZEPINE
  7. ATORVASTATIN [Concomitant]
     Active Substance: ATORVASTATIN
  8. OXYBUTYNIN [Concomitant]
     Active Substance: OXYBUTYNIN

REACTIONS (4)
  - Fatigue [Not Recovered/Not Resolved]
  - Stress [Not Recovered/Not Resolved]
  - COVID-19 [Recovered/Resolved]
  - Trigeminal neuralgia [Not Recovered/Not Resolved]

NARRATIVE: CASE EVENT DATE: 20220101
